FAERS Safety Report 17799636 (Version 1)
Quarter: 2020Q2

REPORT INFORMATION
  Report Type: Report from Study
  Country: ZA (occurrence: ZA)
  Receive Date: 20200518
  Receipt Date: 20200518
  Transmission Date: 20200714
  Serious: Yes (Hospitalization)
  Sender: FDA-Public Use
  Company Number: NVSC2019ZA026764

PATIENT
  Age: 38 Year
  Sex: Female

DRUGS (3)
  1. SOLU-MEDROL [Suspect]
     Active Substance: METHYLPREDNISOLONE SODIUM SUCCINATE
     Indication: PRODUCT USED FOR UNKNOWN INDICATION
     Route: 042
  2. TUVIGIN [Suspect]
     Active Substance: FINGOLIMOD HYDROCHLORIDE
     Indication: RELAPSING-REMITTING MULTIPLE SCLEROSIS
     Dosage: 0.5 MG
     Route: 048
     Dates: start: 20191101
  3. TUVIGIN [Suspect]
     Active Substance: FINGOLIMOD HYDROCHLORIDE
     Dosage: 0.5 MG, QD
     Route: 048
     Dates: start: 20191101

REACTIONS (8)
  - Gait disturbance [Unknown]
  - Upper motor neurone lesion [Unknown]
  - Headache [Unknown]
  - Myelopathy [Unknown]
  - Multiple sclerosis relapse [Unknown]
  - Sensory disturbance [Unknown]
  - Clumsiness [Unknown]
  - Asthenia [Unknown]

NARRATIVE: CASE EVENT DATE: 20191101
